FAERS Safety Report 6419948-1 (Version None)
Quarter: 2009Q4

REPORT INFORMATION
  Report Type: 
  Country: None (occurrence: None)
  Receive Date: 20091029
  Receipt Date: 20091021
  Transmission Date: 20100525
  Serious: Yes (Other)
  Sender: FDA-Public Use
  Company Number: JP-PFIZER INC-2009288172

PATIENT
  Age: 25 Year

DRUGS (4)
  1. SOLU-MEDROL [Suspect]
     Indication: BEHCET'S SYNDROME
     Dosage: 300 MG, UNK
     Route: 042
     Dates: start: 20081027, end: 20081029
  2. PREDNISOLONE [Concomitant]
     Dosage: UNK
     Dates: start: 20060801, end: 20081024
  3. MESALAZINE [Concomitant]
     Dates: start: 20060801, end: 20081024
  4. CYCLOSPORINE [Concomitant]
     Dates: start: 20060801, end: 20081024

REACTIONS (1)
  - SUTURE RUPTURE [None]
